FAERS Safety Report 5690700-8 (Version None)
Quarter: 2008Q2

REPORT INFORMATION
  Report Type: 
  Country: None (occurrence: None)
  Receive Date: 20080401
  Receipt Date: 20080326
  Transmission Date: 20081010
  Serious: No
  Sender: FDA-Public Use
  Company Number: US-MERCK-0803USA03580

PATIENT
  Age: 64 Year
  Sex: Male

DRUGS (5)
  1. JANUVIA [Suspect]
     Indication: DIABETES MELLITUS
     Route: 048
     Dates: start: 20070416, end: 20070508
  2. JANUVIA [Suspect]
     Route: 048
     Dates: start: 20070509, end: 20071129
  3. JANUVIA [Suspect]
     Route: 048
     Dates: start: 20071201
  4. ZOCOR [Suspect]
     Route: 048
     Dates: end: 20071129
  5. ZOCOR [Suspect]
     Route: 048
     Dates: start: 20071201, end: 20071201

REACTIONS (1)
  - BLOOD CREATINE PHOSPHOKINASE INCREASED [None]
